FAERS Safety Report 15580629 (Version 1)
Quarter: 2018Q4

REPORT INFORMATION
  Report Type: Report from Study
  Country: US (occurrence: US)
  Receive Date: 20181102
  Receipt Date: 20181102
  Transmission Date: 20190205
  Serious: Yes (Hospitalization)
  Sender: FDA-Public Use
  Company Number: US-GILEAD-2018-0367055

PATIENT
  Age: 44 Year
  Sex: Male

DRUGS (2)
  1. VELETRI [Concomitant]
     Active Substance: EPOPROSTENOL
  2. AMBRISENTAN [Suspect]
     Active Substance: AMBRISENTAN
     Indication: PRODUCT USED FOR UNKNOWN INDICATION
     Dosage: 10 MG, QD
     Route: 065
     Dates: start: 20171206

REACTIONS (6)
  - Dyspnoea exertional [Not Recovered/Not Resolved]
  - Chest pain [Not Recovered/Not Resolved]
  - Cholelithiasis [Unknown]
  - Cough [Not Recovered/Not Resolved]
  - Dyspnoea [Not Recovered/Not Resolved]
  - Peripheral swelling [Unknown]
